FAERS Safety Report 7387044-5 (Version None)
Quarter: 2011Q1

REPORT INFORMATION
  Report Type: 
  Country: None (occurrence: None)
  Receive Date: 20110331
  Receipt Date: 20110324
  Transmission Date: 20110831
  Serious: Yes (Hospitalization, Other)
  Sender: FDA-Public Use
  Company Number: CA-NOVOPROD-325530

PATIENT
  Age: 28 Year
  Sex: Male

DRUGS (11)
  1. GLUTAMINE [Concomitant]
     Dosage: 7 MG, QD
     Dates: start: 20070101
  2. L-CARNITINE [Concomitant]
     Dosage: 1 G, TID
     Dates: start: 20070101
  3. DEHYDROEPIANDROSTERONE [Concomitant]
     Dosage: 100 MG, QD
     Dates: start: 20070101
  4. CALCITRIOL [Concomitant]
     Dosage: 0.5 UG 3 TIMES WEEKLY
  5. OMEGA-3 FATTY ACIDS [Concomitant]
     Dosage: 3 G, QD
     Dates: start: 20070101
  6. NORDITROPIN [Suspect]
     Indication: OFF LABEL USE
     Dosage: 2 IU, BID
     Route: 058
     Dates: start: 20070101
  7. SEVELAMER [Concomitant]
     Dosage: 800 MG WITH MEALS
     Route: 048
  8. FLUTICASONE PROPIONATE [Concomitant]
     Dosage: 125 UG, BID
  9. ALBUTEROL [Concomitant]
     Dosage: AS NEEDED
     Route: 055
  10. COQ10 [Concomitant]
     Dosage: 200 MG, TID
     Dates: start: 20070101
  11. THYROXINE [Concomitant]
     Dosage: 100 UG, QD
     Dates: start: 20070101

REACTIONS (4)
  - TENDON RUPTURE [None]
  - HYPERPARATHYROIDISM SECONDARY [None]
  - OFF LABEL USE [None]
  - AVULSION FRACTURE [None]
